FAERS Safety Report 9377760 (Version 1)
Quarter: 2013Q2

REPORT INFORMATION
  Report Type: Spontaneous
  Country: US (occurrence: None)
  Receive Date: 20130625
  Receipt Date: 20130625
  Transmission Date: 20140414
  Serious: Yes (Other)
  Sender: FDA-Public Use
  Company Number: US-024925

PATIENT
  Age: 12 Year
  Sex: Male

DRUGS (2)
  1. TIOGUANINE [Suspect]
     Indication: LEUKAEMIA
  2. CYTARABINE [Suspect]
     Indication: PRODUCT USED FOR UNKNOWN INDICATION

REACTIONS (5)
  - Skin haemorrhage [None]
  - Gingival bleeding [None]
  - Lung infiltration [None]
  - Laboratory test interference [None]
  - Bacillus test positive [None]
